FAERS Safety Report 10165246 (Version 1)
Quarter: 2014Q2

REPORT INFORMATION
  Report Type: Spontaneous
  Country: US (occurrence: US)
  Receive Date: 20140510
  Receipt Date: 20140510
  Transmission Date: 20141212
  Serious: No
  Sender: FDA-Public Use
  Company Number: US-BRISTOL-MYERS SQUIBB COMPANY-20348819

PATIENT
  Age: 4 Decade
  Sex: Male

DRUGS (5)
  1. BYDUREON [Suspect]
     Indication: TYPE 2 DIABETES MELLITUS
     Dates: start: 2014
  2. METFORMIN [Concomitant]
  3. GLIMEPIRIDE [Concomitant]
  4. LISINOPRIL [Concomitant]
  5. INDOCIN [Concomitant]

REACTIONS (1)
  - Diarrhoea [Unknown]
